FAERS Safety Report 22019987 (Version 1)
Quarter: 2023Q1

REPORT INFORMATION
  Report Type: Spontaneous
  Country: US (occurrence: US)
  Receive Date: 20230222
  Receipt Date: 20230222
  Transmission Date: 20230418
  Serious: Yes (Other)
  Sender: FDA-Public Use
  Company Number: US-002147023-NVSC2023US037966

PATIENT
  Sex: Female

DRUGS (3)
  1. LINEZOLID [Suspect]
     Active Substance: LINEZOLID
     Indication: Mycobacterium abscessus infection
     Dosage: UNK
     Route: 048
     Dates: start: 20221220
  2. AZITHROMYCIN [Suspect]
     Active Substance: AZITHROMYCIN
     Indication: Mycobacterium abscessus infection
     Dosage: UNK
     Route: 048
     Dates: start: 20221220
  3. AMIKACIN [Suspect]
     Active Substance: AMIKACIN
     Indication: Mycobacterium abscessus infection
     Dosage: UNK
     Route: 042
     Dates: start: 20221220

REACTIONS (7)
  - Mycobacterium abscessus infection [Unknown]
  - Condition aggravated [Unknown]
  - Thrombocytopenia [Unknown]
  - Pulmonary function test decreased [Unknown]
  - Night sweats [Unknown]
  - Weight decreased [Unknown]
  - Drug ineffective [Unknown]
